FAERS Safety Report 7250683-6 (Version None)
Quarter: 2011Q1

REPORT INFORMATION
  Report Type: 
  Country: None (occurrence: None)
  Receive Date: 20110118
  Receipt Date: 20110105
  Transmission Date: 20110831
  Serious: Yes (Hospitalization)
  Sender: FDA-Public Use
  Company Number: 1000018142

PATIENT
  Age: 82 Year
  Sex: Female

DRUGS (8)
  1. VIRAMUNE [Concomitant]
  2. LOPRESSOR (METOPROLOL TARTRATE) (METOPROLOL TARTRATE) [Concomitant]
  3. EPIVIR [Concomitant]
  4. ALDACTONE (IRBESARTAN) (IRBESARTAN) [Concomitant]
  5. MEMANTINE [Suspect]
     Indication: DEMENTIA ALZHEIMER'S TYPE
     Dosage: ORAL
     Route: 048
     Dates: start: 20100908, end: 20101115
  6. APROVEL (IRBESARTAN) (IRBESARTAN) [Concomitant]
  7. ZIAGEN (ABACAVIR SULFATE) (ABACAVIR SULFATE) [Concomitant]
  8. LERCAN (LERCANIDIPINE HYDROCHLORIDE) (LERCANIDIPINE HYDROCHLORIDE) [Concomitant]

REACTIONS (4)
  - OEDEMA PERIPHERAL [None]
  - CYTOLYTIC HEPATITIS [None]
  - DYSPNOEA [None]
  - GASTROINTESTINAL CANDIDIASIS [None]
